FAERS Safety Report 7875820-1 (Version None)
Quarter: 2011Q4

REPORT INFORMATION
  Report Type: 
  Country: None (occurrence: None)
  Receive Date: 20111031
  Receipt Date: 20111018
  Transmission Date: 20120403
  Serious: Yes (Other)
  Sender: FDA-Public Use
  Company Number: PHHY2011GR91749

PATIENT
  Age: 6 Year
  Sex: Male

DRUGS (1)
  1. MYFORTIC [Suspect]
     Indication: NEPHROTIC SYNDROME
     Dosage: UNK UKN, UNK
     Route: 048
     Dates: start: 20101101, end: 20110405

REACTIONS (1)
  - ALOPECIA [None]
